FAERS Safety Report 7678791-6 (Version None)
Quarter: 2011Q3

REPORT INFORMATION
  Report Type: 
  Country: None (occurrence: None)
  Receive Date: 20110811
  Receipt Date: 20110802
  Transmission Date: 20111222
  Serious: Yes (Other)
  Sender: FDA-Public Use
  Company Number: CN-ASTRAZENECA-2011SE46231

PATIENT
  Age: 62 Year
  Sex: Female

DRUGS (5)
  1. MIDAZOLAM HCL [Suspect]
  2. PROSTIGMIN BROMIDE [Suspect]
  3. ATRACURIUM BESYLATE [Suspect]
  4. PROPOFOL [Suspect]
     Indication: ANAESTHESIA
     Route: 042
  5. FENTANYL [Suspect]
     Indication: ANAESTHESIA

REACTIONS (4)
  - AGITATION [None]
  - RESPIRATION ABNORMAL [None]
  - TREMOR [None]
  - DYSPNOEA [None]
